FAERS Safety Report 19481541 (Version 3)
Quarter: 2021Q3

REPORT INFORMATION
  Report Type: Spontaneous
  Country: PL (occurrence: PL)
  Receive Date: 20210701
  Receipt Date: 20210728
  Transmission Date: 20211014
  Serious: Yes (Other)
  Sender: FDA-Public Use
  Company Number: PL-AUROBINDO-AUR-APL-2021-025457

PATIENT
  Age: 26 Year
  Sex: Male

DRUGS (17)
  1. PARACETAMOL [Interacting]
     Active Substance: ACETAMINOPHEN
     Indication: PROCTALGIA
  2. SERTRALINE [Interacting]
     Active Substance: SERTRALINE HYDROCHLORIDE
     Indication: DEPRESSION
     Dosage: 100 MILLIGRAM, ONCE A DAY AT NIGHT
     Route: 065
  3. IBUPROFEN. [Interacting]
     Active Substance: IBUPROFEN
     Indication: PROCTALGIA
  4. MIANSERIN [Interacting]
     Active Substance: MIANSERIN
     Indication: DEPRESSION
     Dosage: 30 MILLIGRAM, ONCE A DAY (PER NIGHT)
     Route: 065
  5. HYOSCINE BUTYLBROMIDE [Interacting]
     Active Substance: BUTYLSCOPOLAMINE BROMIDE
     Indication: PRODUCT USED FOR UNKNOWN INDICATION
     Dosage: 0.75 MG 3 TIMES DAILY, REDUCED TO 0.7
     Route: 048
  6. METAMIZOLE [Interacting]
     Active Substance: METAMIZOLE
     Indication: LEVATOR SYNDROME
     Dosage: UNK
     Route: 065
  7. IBUPROFEN. [Interacting]
     Active Substance: IBUPROFEN
     Indication: LEVATOR SYNDROME
     Dosage: UNK
     Route: 065
  8. METAMIZOLE [Interacting]
     Active Substance: METAMIZOLE
     Indication: PROCTALGIA
  9. OMEPRAZOLE. [Interacting]
     Active Substance: OMEPRAZOLE
     Indication: PRODUCT USED FOR UNKNOWN INDICATION
     Dosage: UNK
     Route: 048
  10. KETOPROFEN. [Interacting]
     Active Substance: KETOPROFEN
     Indication: PROCTALGIA
  11. PARACETAMOL [Suspect]
     Active Substance: ACETAMINOPHEN
     Indication: LEVATOR SYNDROME
     Dosage: UNK
     Route: 065
  12. KETOPROFEN. [Interacting]
     Active Substance: KETOPROFEN
     Indication: LEVATOR SYNDROME
     Dosage: UNK
     Route: 065
  13. KETOPROFEN. [Interacting]
     Active Substance: KETOPROFEN
     Indication: PAIN
  14. MIANSERIN [Interacting]
     Active Substance: MIANSERIN
     Indication: INSOMNIA
  15. AGOMELATINE [Concomitant]
     Active Substance: AGOMELATINE
     Indication: PRODUCT USED FOR UNKNOWN INDICATION
     Dosage: UNK
     Route: 065
  16. CLONIDINE. [Concomitant]
     Active Substance: CLONIDINE
     Indication: PRODUCT USED FOR UNKNOWN INDICATION
     Dosage: 0.75 MG 3 TIMES DAILY, REDUCED TO 0.75
     Route: 048
  17. SERTRALINE [Interacting]
     Active Substance: SERTRALINE HYDROCHLORIDE
     Indication: INSOMNIA

REACTIONS (6)
  - Drug interaction [Recovered/Resolved]
  - Levator syndrome [Recovered/Resolved]
  - Labelled drug-drug interaction medication error [Recovered/Resolved]
  - Proctalgia [Recovered/Resolved]
  - Drug ineffective [Recovered/Resolved]
  - Paroxysmal extreme pain disorder [Recovered/Resolved]
